FAERS Safety Report 17410039 (Version 2)
Quarter: 2020Q1

REPORT INFORMATION
  Report Type: Spontaneous
  Country: IN (occurrence: IN)
  Receive Date: 20200212
  Receipt Date: 20200225
  Transmission Date: 20200409
  Serious: Yes (Other)
  Sender: FDA-Public Use
  Company Number: IN-PFIZER INC-2019392017

PATIENT
  Age: 38 Year
  Sex: Male

DRUGS (2)
  1. CRIZALK [Suspect]
     Active Substance: CRIZOTINIB
     Indication: NON-SMALL CELL LUNG CANCER
     Dosage: 250 MG, 2X/DAY
     Route: 048
     Dates: start: 20180125
  2. SOMPRAZ-D [Concomitant]
     Dosage: 1 DF, 1X/DAY

REACTIONS (7)
  - Hypersensitivity [Unknown]
  - Second primary malignancy [Unknown]
  - Cough [Unknown]
  - Allergic sinusitis [Unknown]
  - Nasopharyngitis [Unknown]
  - Adenocarcinoma [Unknown]
  - Skin exfoliation [Unknown]
